FAERS Safety Report 16955995 (Version 1)
Quarter: 2019Q4

REPORT INFORMATION
  Report Type: Spontaneous
  Country: US (occurrence: US)
  Receive Date: 20191024
  Receipt Date: 20191024
  Transmission Date: 20200122
  Serious: No
  Sender: FDA-Public Use
  Company Number: US-DRREDDYS-USA/USA/19/0115319

PATIENT
  Sex: Female
  Weight: 56.6 kg

DRUGS (2)
  1. OMEPRAZOLE. [Suspect]
     Active Substance: OMEPRAZOLE
     Route: 048
  2. OMEPRAZOLE. [Suspect]
     Active Substance: OMEPRAZOLE
     Indication: DYSPEPSIA
     Route: 048

REACTIONS (8)
  - Anxiety [Unknown]
  - Rash [Unknown]
  - Skin exfoliation [Unknown]
  - Stress [Unknown]
  - Flatulence [Unknown]
  - Heart rate irregular [Unknown]
  - Tremor [Unknown]
  - Abdominal pain upper [Unknown]
